FAERS Safety Report 10252528 (Version 1)
Quarter: 2014Q2

REPORT INFORMATION
  Report Type: Spontaneous
  Country: US (occurrence: None)
  Receive Date: 20140620
  Receipt Date: 20140620
  Transmission Date: 20141212
  Serious: Yes (Death)
  Sender: FDA-Public Use
  Company Number: None

PATIENT
  Age: 80 Year
  Sex: Male
  Weight: 64.41 kg

DRUGS (1)
  1. WARFARIN [Suspect]

REACTIONS (7)
  - Epistaxis [None]
  - Anaemia [None]
  - Blood pressure decreased [None]
  - Dyspnoea [None]
  - Oxygen saturation decreased [None]
  - Cardiac arrest [None]
  - Transfusion-related acute lung injury [None]
